FAERS Safety Report 23094054 (Version 1)
Quarter: 2023Q4

REPORT INFORMATION
  Report Type: Other
  Country: US (occurrence: None)
  Receive Date: 20231023
  Receipt Date: 20231023
  Transmission Date: 20240110
  Serious: Yes (Death, Life-Threatening, Other)
  Sender: FDA-Public Use
  Company Number: US-ROCHE-3441337

PATIENT

DRUGS (7)
  1. ATEZOLIZUMAB [Suspect]
     Active Substance: ATEZOLIZUMAB
     Indication: Non-small cell lung cancer metastatic
     Dosage: OVER 1 HOUR
     Route: 042
  2. ATEZOLIZUMAB [Suspect]
     Active Substance: ATEZOLIZUMAB
     Dosage: OVER 1 HOUR
     Route: 042
  3. ATEZOLIZUMAB [Suspect]
     Active Substance: ATEZOLIZUMAB
     Dosage: OVER 1 HOUR
     Route: 042
  4. NIVOLUMAB [Suspect]
     Active Substance: NIVOLUMAB
     Indication: Non-small cell lung cancer metastatic
     Dosage: OR AS A BODYWEIGHT-BASED DOSE.
     Route: 042
  5. NIVOLUMAB [Suspect]
     Active Substance: NIVOLUMAB
     Dosage: OR AS A BODYWEIGHT-BASED DOSE.
     Route: 042
  6. PEMBROLIZUMAB [Suspect]
     Active Substance: PEMBROLIZUMAB
     Indication: Non-small cell lung cancer metastatic
     Dosage: OR AS A BODYWEIGHT-BASED DOSE.
     Route: 042
  7. PEMBROLIZUMAB [Suspect]
     Active Substance: PEMBROLIZUMAB
     Dosage: (OVER 30 MIN), OR AS A BODYWEIGHT-BASED DOSE.
     Route: 042

REACTIONS (63)
  - Pulmonary haemorrhage [Fatal]
  - Pulmonary embolism [Fatal]
  - Intestinal perforation [Fatal]
  - Pneumonia [Fatal]
  - Sepsis [Fatal]
  - Respiratory failure [Fatal]
  - Chronic obstructive pulmonary disease [Fatal]
  - Anaemia [Unknown]
  - Leukopenia [Unknown]
  - General physical health deterioration [Unknown]
  - Hyponatraemia [Unknown]
  - Paresis [Unknown]
  - Thrombocytopenia [Unknown]
  - Lymphopenia [Unknown]
  - Pericardial effusion [Unknown]
  - Diarrhoea [Unknown]
  - Nausea [Unknown]
  - Vomiting [Unknown]
  - Ileus [Unknown]
  - Fatigue [Unknown]
  - Pain [Unknown]
  - Respiratory tract infection [Unknown]
  - Urinary tract infection [Unknown]
  - Fracture [Unknown]
  - Hepatic enzyme increased [Unknown]
  - Weight decreased [Unknown]
  - Hypokalaemia [Unknown]
  - Hypercalcaemia [Unknown]
  - Hyperglycaemia [Unknown]
  - Musculoskeletal pain [Unknown]
  - Tumour pain [Unknown]
  - Metastases to bone [Unknown]
  - Neuropathy peripheral [Unknown]
  - Dysarthria [Unknown]
  - Dyspnoea [Unknown]
  - Cough [Unknown]
  - Pleural effusion [Unknown]
  - Pneumonitis [Unknown]
  - Embolism [Unknown]
  - Atelectasis [Unknown]
  - Dermatitis [Unknown]
  - Rash [Unknown]
  - Deep vein thrombosis [Unknown]
  - Rash maculo-papular [Unknown]
  - Hypertension [Unknown]
  - Pruritus [Unknown]
  - Alopecia [Unknown]
  - Confusional state [Unknown]
  - Headache [Unknown]
  - Skin ulcer [Unknown]
  - Sleep disorder [Unknown]
  - Muscular weakness [Unknown]
  - Decreased appetite [Unknown]
  - Dehydration [Unknown]
  - Hypoalbuminaemia [Unknown]
  - Gastroenteritis [Unknown]
  - Dysphagia [Unknown]
  - Mouth ulceration [Unknown]
  - Infection [Unknown]
  - Abdominal pain [Unknown]
  - Localised oedema [Unknown]
  - Constipation [Unknown]
  - Pyrexia [Unknown]
